FAERS Safety Report 23689242 (Version 1)
Quarter: 2024Q1

REPORT INFORMATION
  Report Type: Report from Study
  Country: CA (occurrence: CA)
  Receive Date: 20240330
  Receipt Date: 20240330
  Transmission Date: 20240409
  Serious: Yes (Other)
  Sender: FDA-Public Use
  Company Number: CA-ABBVIE-5696343

PATIENT
  Age: 56 Year
  Sex: Female

DRUGS (2)
  1. BOTOX [Suspect]
     Active Substance: ONABOTULINUMTOXINA
     Indication: Headache
     Dosage: TIME INTERVAL: AS NECESSARY: 30 NEEDLES
     Route: 030
  2. RINVOQ [Suspect]
     Active Substance: UPADACITINIB
     Indication: Dermatitis atopic
     Route: 048
     Dates: start: 20240125

REACTIONS (2)
  - Knee arthroplasty [Unknown]
  - Pain [Unknown]

NARRATIVE: CASE EVENT DATE: 20230719
